FAERS Safety Report 10189854 (Version 1)
Quarter: 2014Q2

REPORT INFORMATION
  Report Type: Spontaneous
  Country: US (occurrence: US)
  Receive Date: 20140522
  Receipt Date: 20140522
  Transmission Date: 20141212
  Serious: Yes (Hospitalization)
  Sender: FDA-Public Use
  Company Number: US-SA-2013SA134776

PATIENT
  Age: 65 Year
  Sex: Female

DRUGS (5)
  1. LANTUS SOLOSTAR [Suspect]
     Indication: DIABETES MELLITUS
     Dosage: DOSE:35 UNIT(S)
     Route: 051
     Dates: start: 201311
  2. LANTUS SOLOSTAR [Suspect]
     Indication: DIABETES MELLITUS
     Dosage: DOSE:10 UNIT(S)
     Route: 051
  3. SOLOSTAR [Suspect]
     Indication: DIABETES MELLITUS
     Dates: start: 201311
  4. SOLOSTAR [Suspect]
     Indication: DIABETES MELLITUS
  5. JANUVIA [Concomitant]
     Route: 065

REACTIONS (2)
  - Blood glucose decreased [Unknown]
  - Drug dose omission [Unknown]
